FAERS Safety Report 17430642 (Version 1)
Quarter: 2020Q1

REPORT INFORMATION
  Report Type: Spontaneous
  Country: US (occurrence: US)
  Receive Date: 20200216
  Receipt Date: 20200216
  Transmission Date: 20200409
  Serious: Yes (Hospitalization)
  Sender: FDA-Public Use
  Company Number: None

PATIENT
  Age: 44 Year
  Sex: Female
  Weight: 83.7 kg

DRUGS (2)
  1. TOPIRAMATE. [Suspect]
     Active Substance: TOPIRAMATE
     Indication: MIGRAINE
     Dosage: ?          QUANTITY:60 TABLET(S);?
     Route: 048
  2. PROBIOTIC GUMMIES [Concomitant]

REACTIONS (7)
  - Cholelithiasis [None]
  - Nausea [None]
  - Bile duct stone [None]
  - Lethargy [None]
  - Therapeutic product effect variable [None]
  - Gastrointestinal disorder [None]
  - Dizziness [None]

NARRATIVE: CASE EVENT DATE: 20200109
